FAERS Safety Report 9891272 (Version 1)
Quarter: 2014Q1

REPORT INFORMATION
  Report Type: Spontaneous
  Country: US (occurrence: None)
  Receive Date: 20140211
  Receipt Date: 20140211
  Transmission Date: 20141002
  Serious: Yes (Hospitalization)
  Sender: FDA-Public Use
  Company Number: None

PATIENT
  Age: 58 Year
  Sex: Male
  Weight: 107.8 kg

DRUGS (1)
  1. PRAZOSIN [Suspect]
     Indication: NIGHTMARE
     Dosage: 1 MG PER HOUR  PO
     Route: 048
     Dates: start: 20130705, end: 20130706

REACTIONS (1)
  - Blood pressure decreased [None]
